FAERS Safety Report 4296455-6 (Version None)
Quarter: 2004Q1

REPORT INFORMATION
  Report Type: 
  Country: None (occurrence: None)
  Receive Date: 20040120
  Receipt Date: 20031212
  Transmission Date: 20041129
  Serious: No
  Sender: FDA-Public Use
  Company Number: 200310534BYL

PATIENT
  Sex: Female

DRUGS (1)
  1. PLASMANATE [Suspect]
     Dosage: 250 ML, QD, INTRAVENOUS DRIP
     Route: 041
     Dates: start: 20031208, end: 20031210

REACTIONS (1)
  - CHILLS [None]
